FAERS Safety Report 22337723 (Version 1)
Quarter: 2023Q2

REPORT INFORMATION
  Report Type: Spontaneous
  Country: US (occurrence: US)
  Receive Date: 20230518
  Receipt Date: 20230518
  Transmission Date: 20230722
  Serious: Yes (Other)
  Sender: FDA-Public Use
  Company Number: US-COLLEGIUM PHARMACEUTICAL, INC.-20220800156

PATIENT

DRUGS (3)
  1. XTAMPZA ER [Suspect]
     Active Substance: OXYCODONE
     Indication: Pain
     Dosage: 18 MILLIGRAM, BID (EVERY 12 HOURS)
     Dates: start: 202109
  2. NORCO [Concomitant]
     Active Substance: ACETAMINOPHEN\HYDROCODONE BITARTRATE
     Indication: Analgesic therapy
     Dosage: UNK, UNKNOWN
     Route: 065
  3. CYCLOBENZAPRINE [Concomitant]
     Active Substance: CYCLOBENZAPRINE
     Indication: Muscle relaxant therapy
     Dosage: UNK, UNKNOWN
     Route: 065

REACTIONS (3)
  - Drug withdrawal syndrome [Unknown]
  - Nausea [Unknown]
  - Drug ineffective [Unknown]

NARRATIVE: CASE EVENT DATE: 20220101
